FAERS Safety Report 12095222 (Version 1)
Quarter: 2016Q1

REPORT INFORMATION
  Report Type: Report from Study
  Country: AU (occurrence: AU)
  Receive Date: 20160219
  Receipt Date: 20160219
  Transmission Date: 20160526
  Serious: Yes (Hospitalization)
  Sender: FDA-Public Use
  Company Number: AU-BIOGEN-2016BI00172513

PATIENT
  Age: 32 Year
  Sex: Female

DRUGS (4)
  1. ENDONE [Concomitant]
     Active Substance: OXYCODONE HYDROCHLORIDE
     Indication: INFLUENZA LIKE ILLNESS
     Route: 065
  2. PLEGRIDY [Suspect]
     Active Substance: PEGINTERFERON BETA-1A
     Indication: MULTIPLE SCLEROSIS
     Route: 058
     Dates: start: 20151229
  3. ENDONE [Concomitant]
     Active Substance: OXYCODONE HYDROCHLORIDE
     Indication: NAUSEA
  4. PLEGRIDY [Suspect]
     Active Substance: PEGINTERFERON BETA-1A
     Route: 058
     Dates: start: 20160209

REACTIONS (8)
  - Influenza like illness [Not Recovered/Not Resolved]
  - Bladder spasm [Unknown]
  - Urinary tract infection [Unknown]
  - Muscle spasms [Unknown]
  - Dysstasia [Unknown]
  - Nausea [Not Recovered/Not Resolved]
  - Infected skin ulcer [Unknown]
  - Subcutaneous abscess [Unknown]

NARRATIVE: CASE EVENT DATE: 20151229
